FAERS Safety Report 5146686-8 (Version None)
Quarter: 2006Q4

REPORT INFORMATION
  Report Type: 
  Country: None (occurrence: None)
  Receive Date: 20061109
  Receipt Date: 20061029
  Transmission Date: 20070319
  Serious: Yes (Other)
  Sender: FDA-Public Use
  Company Number: PHNU2006DE03576

PATIENT
  Sex: Female

DRUGS (1)
  1. METHERGINE [Suspect]
     Indication: MENORRHAGIA
     Dosage: UNK, TID
     Route: 048
     Dates: start: 20061027

REACTIONS (5)
  - BONE PAIN [None]
  - DIZZINESS [None]
  - MYALGIA [None]
  - NAUSEA [None]
  - TACHYCARDIA [None]
